FAERS Safety Report 8391284-6 (Version None)
Quarter: 2012Q2

REPORT INFORMATION
  Report Type: 
  Country: None (occurrence: None)
  Receive Date: 20120529
  Receipt Date: 20120518
  Transmission Date: 20120825
  Serious: Yes (Other)
  Sender: FDA-Public Use
  Company Number: US-JNJFOC-20120211237

PATIENT
  Sex: Male

DRUGS (6)
  1. CARVEDILOL [Concomitant]
     Indication: BLOOD PRESSURE
     Route: 065
  2. LEVAQUIN [Suspect]
     Indication: INFECTION
     Route: 048
     Dates: start: 20110201
  3. LEVAQUIN [Suspect]
     Indication: SINUSITIS
     Route: 048
     Dates: start: 20110201
  4. LEVAQUIN [Suspect]
     Indication: LYMPHADENOPATHY
     Route: 048
     Dates: start: 20110201
  5. TAMSULOSIN HCL [Concomitant]
     Route: 065
  6. LISINOPRIL [Concomitant]
     Indication: BLOOD PRESSURE
     Route: 065

REACTIONS (7)
  - MUSCULOSKELETAL PAIN [None]
  - POOR QUALITY SLEEP [None]
  - JOINT INJURY [None]
  - EPICONDYLITIS [None]
  - ROTATOR CUFF SYNDROME [None]
  - TENDONITIS [None]
  - ANXIETY [None]
